FAERS Safety Report 25188775 (Version 1)
Quarter: 2025Q2

REPORT INFORMATION
  Report Type: Spontaneous
  Country: GR (occurrence: GR)
  Receive Date: 20250411
  Receipt Date: 20250411
  Transmission Date: 20250717
  Serious: Yes (Other)
  Sender: SANDOZ
  Company Number: GR-PFIZER INC-PV202300183192

PATIENT
  Age: 78 Year
  Sex: Female

DRUGS (2)
  1. CYCLOPHOSPHAMIDE [Suspect]
     Active Substance: CYCLOPHOSPHAMIDE
     Indication: Necrotising myositis
     Route: 065
  2. METHYLPREDNISOLONE [Suspect]
     Active Substance: METHYLPREDNISOLONE
     Indication: Necrotising myositis
     Route: 065

REACTIONS (4)
  - Hypertension [Unknown]
  - Albuminuria [Unknown]
  - Renal impairment [Unknown]
  - Off label use [Unknown]
